FAERS Safety Report 4721356-6 (Version None)
Quarter: 2005Q3

REPORT INFORMATION
  Report Type: 
  Country: None (occurrence: None)
  Receive Date: 20050721
  Receipt Date: 20040715
  Transmission Date: 20060218
  Serious: No
  Sender: FDA-Public Use
  Company Number: US-BRISTOL-MYERS SQUIBB COMPANY-12641288

PATIENT
  Age: 63 Year
  Sex: Female

DRUGS (8)
  1. COUMADIN [Suspect]
     Indication: HEART VALVE REPLACEMENT
     Dosage: ON RX FOR 10 TO 11 YEARS; AT REPORTING TAKING 5MG, 2 TABS X 2 DAYS + 1 1/2 TABS X 3 DAYS.
     Route: 048
  2. COUMADIN [Suspect]
     Indication: HEART RATE IRREGULAR
     Dosage: ON RX FOR 10 TO 11 YEARS; AT REPORTING TAKING 5MG, 2 TABS X 2 DAYS + 1 1/2 TABS X 3 DAYS.
     Route: 048
  3. ATENOLOL [Concomitant]
  4. LIPITOR [Concomitant]
  5. DIOVAN [Concomitant]
  6. MONOPRIL [Concomitant]
  7. METAGLIP [Concomitant]
  8. SYNTHROID [Concomitant]

REACTIONS (1)
  - INTERNATIONAL NORMALISED RATIO DECREASED [None]
